FAERS Safety Report 5343928-0 (Version None)
Quarter: 2007Q2

REPORT INFORMATION
  Report Type: 
  Country: None (occurrence: None)
  Receive Date: 20070531
  Receipt Date: 20070518
  Transmission Date: 20071010
  Serious: Yes (Hospitalization, Disabling, Other)
  Sender: FDA-Public Use
  Company Number: 16606

PATIENT
  Age: 5 Year
  Sex: Male

DRUGS (1)
  1. VITAMIN A [Suspect]
     Indication: IMMUNE ENHANCEMENT THERAPY

REACTIONS (13)
  - ARTHRALGIA [None]
  - BONE DISORDER [None]
  - COAGULOPATHY [None]
  - FALL [None]
  - HEPATOTOXICITY [None]
  - HYDROCEPHALUS [None]
  - HYPERREFLEXIA [None]
  - HYPERVITAMINOSIS A [None]
  - INCORRECT DOSE ADMINISTERED [None]
  - MOTOR DYSFUNCTION [None]
  - SKELETAL SURVEY ABNORMAL [None]
  - SPEECH DISORDER [None]
  - SPLENOMEGALY [None]
